FAERS Safety Report 24954459 (Version 1)
Quarter: 2025Q1

REPORT INFORMATION
  Report Type: Spontaneous
  Country: GB (occurrence: GB)
  Receive Date: 20250211
  Receipt Date: 20250211
  Transmission Date: 20250408
  Serious: Yes (Disabling, Other)
  Sender: IRON THERAPEUTICS
  Company Number: GB-NORGINE LIMITED-NOR202102874

PATIENT
  Age: 54 Year
  Sex: Female
  Weight: 65 kg

DRUGS (2)
  1. IRON [Suspect]
     Active Substance: IRON
     Indication: Product used for unknown indication
     Route: 065
  2. ASTRAZENECA COVID-19 VACCINE [Suspect]
     Active Substance: AZD-1222
     Indication: COVID-19 immunisation
     Route: 065
     Dates: start: 20210120, end: 20210120

REACTIONS (51)
  - Drug reaction with eosinophilia and systemic symptoms [Not Recovered/Not Resolved]
  - Autonomic nervous system imbalance [Not Recovered/Not Resolved]
  - Amnesia [Unknown]
  - Hypertension [Not Recovered/Not Resolved]
  - Haematoma [Not Recovered/Not Resolved]
  - Musculoskeletal stiffness [Not Recovered/Not Resolved]
  - Vibration syndrome [Not Recovered/Not Resolved]
  - Muscle spasms [Unknown]
  - Postural orthostatic tachycardia syndrome [Unknown]
  - Internal haemorrhage [Recovering/Resolving]
  - Chest discomfort [Not Recovered/Not Resolved]
  - Angina pectoris [Recovering/Resolving]
  - Sleep apnoea syndrome [Unknown]
  - Confusional state [Unknown]
  - Pain [Recovering/Resolving]
  - Pyrexia [Recovering/Resolving]
  - Hot flush [Not Recovered/Not Resolved]
  - Dizziness [Not Recovered/Not Resolved]
  - Blood pressure diastolic [Recovering/Resolving]
  - Fatigue [Not Recovered/Not Resolved]
  - Chest pain [Not Recovered/Not Resolved]
  - Dizziness postural [Not Recovered/Not Resolved]
  - Vertigo [Not Recovered/Not Resolved]
  - Ear pain [Not Recovered/Not Resolved]
  - Vision blurred [Not Recovered/Not Resolved]
  - Vessel puncture site bruise [Recovered/Resolved with Sequelae]
  - Photophobia [Not Recovered/Not Resolved]
  - Parosmia [Not Recovered/Not Resolved]
  - Paraesthesia [Not Recovered/Not Resolved]
  - Hypoaesthesia [Not Recovered/Not Resolved]
  - Limb discomfort [Not Recovered/Not Resolved]
  - Burning sensation [Not Recovered/Not Resolved]
  - Palpitations [Not Recovered/Not Resolved]
  - Chills [Not Recovered/Not Resolved]
  - Decreased appetite [Not Recovered/Not Resolved]
  - Weight decreased [Not Recovered/Not Resolved]
  - Dyspepsia [Not Recovered/Not Resolved]
  - Exercise tolerance decreased [Unknown]
  - Pollakiuria [Unknown]
  - Varicose vein [Unknown]
  - Anxiety [Unknown]
  - Malaise [Unknown]
  - Pain in extremity [Not Recovered/Not Resolved]
  - Nausea [Not Recovered/Not Resolved]
  - Headache [Not Recovered/Not Resolved]
  - Injection site bruising [Unknown]
  - Peripheral swelling [Not Recovered/Not Resolved]
  - Feeling hot [Not Recovered/Not Resolved]
  - Injection site indentation [Unknown]
  - Injection site swelling [Unknown]
  - Costochondritis [Unknown]

NARRATIVE: CASE EVENT DATE: 20210120
